FAERS Safety Report 4664218-5 (Version None)
Quarter: 2005Q2

REPORT INFORMATION
  Report Type: 
  Country: None (occurrence: None)
  Receive Date: 20050516
  Receipt Date: 20050505
  Transmission Date: 20051028
  Serious: Yes (Hospitalization)
  Sender: FDA-Public Use
  Company Number: 2005071473

PATIENT
  Age: 67 Year
  Sex: 0

DRUGS (7)
  1. GABAPENTIN [Suspect]
     Indication: NEUROPATHIC PAIN
     Dosage: 2400 MG (1200 MG, 2 IN 1 D)
  2. RAMIPRIL [Concomitant]
  3. BISOPROLOL (BISOPROLOL) [Concomitant]
  4. AMIODARONE HCL [Concomitant]
  5. IPRATROPIUM BROMIDE [Concomitant]
  6. HYDROCORTISONE [Concomitant]
  7. CIPROFLOXACIN [Concomitant]

REACTIONS (3)
  - CIRCADIAN RHYTHM SLEEP DISORDER [None]
  - DYSPNOEA [None]
  - SEDATION [None]
